FAERS Safety Report 7391158-3 (Version None)
Quarter: 2011Q2

REPORT INFORMATION
  Report Type: 
  Country: None (occurrence: None)
  Receive Date: 20110404
  Receipt Date: 20100517
  Transmission Date: 20111010
  Serious: No
  Sender: FDA-Public Use
  Company Number: US-PFIZER INC-2010062462

PATIENT
  Sex: Female
  Weight: 52 kg

DRUGS (4)
  1. SERTRALINE HYDROCHLORIDE [Suspect]
     Dosage: 75 MG, 1X/DAY
     Dates: start: 20100501
  2. ASPIRIN [Suspect]
  3. SERTRALINE HYDROCHLORIDE [Suspect]
     Indication: ANXIETY
     Dosage: 50 MG, 1X/DAY
     Route: 048
     Dates: start: 20100401
  4. NORVASC [Concomitant]
     Dosage: UNK

REACTIONS (2)
  - MALAISE [None]
  - ABDOMINAL DISCOMFORT [None]
